FAERS Safety Report 22202430 (Version 1)
Quarter: 2023Q2

REPORT INFORMATION
  Report Type: Spontaneous
  Country: US (occurrence: None)
  Receive Date: 20230412
  Receipt Date: 20230412
  Transmission Date: 20230721
  Serious: Yes (Hospitalization)
  Sender: FDA-Public Use
  Company Number: None

PATIENT
  Age: 87 Year
  Sex: Male

DRUGS (12)
  1. XTANDI [Suspect]
     Active Substance: ENZALUTAMIDE
     Indication: Prostate cancer
     Dosage: FREQUENCY : DAILY;?
     Route: 048
     Dates: start: 20220526, end: 20230410
  2. AMLODIPINE [Concomitant]
     Active Substance: AMLODIPINE BESYLATE
  3. LOSARTAN [Concomitant]
     Active Substance: LOSARTAN
  4. ASPIRIN [Concomitant]
     Active Substance: ASPIRIN
  5. FOLIC ACID [Concomitant]
     Active Substance: FOLIC ACID
  6. ATORVASTATIN [Concomitant]
     Active Substance: ATORVASTATIN
  7. CLOPIDOGREL [Concomitant]
     Active Substance: CLOPIDOGREL BISULFATE
  8. CHOLECALCIFEROL [Concomitant]
     Active Substance: CHOLECALCIFEROL
  9. CYANOCOBALAMIN [Concomitant]
     Active Substance: CYANOCOBALAMIN
  10. TAMSULOSIN [Concomitant]
     Active Substance: TAMSULOSIN
  11. LUPRON [Concomitant]
     Active Substance: LEUPROLIDE ACETATE
  12. XGEVA [Concomitant]
     Active Substance: DENOSUMAB

REACTIONS (2)
  - Seizure [None]
  - Therapy cessation [None]

NARRATIVE: CASE EVENT DATE: 20230219
